FAERS Safety Report 7434798-5 (Version None)
Quarter: 2011Q2

REPORT INFORMATION
  Report Type: 
  Country: None (occurrence: None)
  Receive Date: 20110415
  Receipt Date: 20110407
  Transmission Date: 20111010
  Serious: Yes (Other)
  Sender: FDA-Public Use
  Company Number: 2011SP013152

PATIENT
  Age: 20 Year
  Sex: Female
  Weight: 50 kg

DRUGS (1)
  1. IMPLANON [Suspect]
     Indication: CONTRACEPTION
     Dosage: 68 MG;SBDE
     Route: 059
     Dates: start: 20100407

REACTIONS (12)
  - MENSTRUATION DELAYED [None]
  - VAGINAL INFECTION [None]
  - ECCHYMOSIS [None]
  - OEDEMA PERIPHERAL [None]
  - MENSTRUATION IRREGULAR [None]
  - PHARYNGITIS [None]
  - BREAST PAIN [None]
  - HEADACHE [None]
  - ABDOMINAL PAIN [None]
  - DIZZINESS [None]
  - VOMITING [None]
  - MUSCLE FATIGUE [None]
